FAERS Safety Report 22001334 (Version 1)
Quarter: 2023Q1

REPORT INFORMATION
  Report Type: Spontaneous
  Country: HR (occurrence: HR)
  Receive Date: 20230216
  Receipt Date: 20230216
  Transmission Date: 20230417
  Serious: Yes (Other)
  Sender: FDA-Public Use
  Company Number: None

PATIENT
  Age: 18 Year
  Sex: Male

DRUGS (3)
  1. CLOZAPINE [Suspect]
     Active Substance: CLOZAPINE
     Indication: Product used for unknown indication
     Dosage: 20 DOSAGE FORM, QD, 1 DF = 1 TABLET
     Route: 048
     Dates: start: 20221227, end: 20221227
  2. AKINETON [Suspect]
     Active Substance: BIPERIDEN HYDROCHLORIDE
     Dosage: 40 DOSAGE FORM, QD, 1 DF = 1 TABLET
     Route: 048
     Dates: start: 20221227, end: 20221227
  3. RISPERIDONE [Suspect]
     Active Substance: RISPERIDONE
     Indication: Product used for unknown indication
     Dosage: 20 DOSAGE FORM, QD, 1 DF = 1 TABLETA
     Route: 048
     Dates: start: 20221227, end: 20221227

REACTIONS (3)
  - Suicide attempt [Unknown]
  - Extrapyramidal disorder [Unknown]
  - Intentional overdose [Unknown]

NARRATIVE: CASE EVENT DATE: 20221227
